FAERS Safety Report 12566988 (Version 1)
Quarter: 2016Q3

REPORT INFORMATION
  Report Type: Report from Study
  Country: BR (occurrence: BR)
  Receive Date: 20160718
  Receipt Date: 20160718
  Transmission Date: 20161109
  Serious: Yes (Other)
  Sender: FDA-Public Use
  Company Number: PHHY2016BR097444

PATIENT
  Sex: Female
  Weight: 66 kg

DRUGS (2)
  1. AFINITOR [Suspect]
     Active Substance: EVEROLIMUS
     Indication: HEPATIC NEOPLASM
  2. AFINITOR [Suspect]
     Active Substance: EVEROLIMUS
     Indication: RECTAL NEOPLASM
     Dosage: 10 MG, QD
     Route: 048

REACTIONS (3)
  - Abasia [Unknown]
  - Neoplasm progression [Unknown]
  - Drug ineffective [Unknown]
